FAERS Safety Report 13011653 (Version 1)
Quarter: 2016Q4

REPORT INFORMATION
  Report Type: Spontaneous
  Country: US (occurrence: US)
  Receive Date: 20161209
  Receipt Date: 20161209
  Transmission Date: 20170207
  Serious: No
  Sender: FDA-Public Use
  Company Number: US-BEH-2016075882

PATIENT
  Age: 5 Year
  Sex: Female
  Weight: 20.41 kg

DRUGS (4)
  1. LIDOCAINE W/PRILOCAINE [Concomitant]
     Route: 065
  2. SODIUM CHLORIDE. [Concomitant]
     Active Substance: SODIUM CHLORIDE
     Route: 065
  3. BERINERT [Suspect]
     Active Substance: HUMAN C1-ESTERASE INHIBITOR
     Indication: HEREDITARY ANGIOEDEMA
     Dosage: 500 IU, PRN
     Route: 042
     Dates: start: 20140314
  4. EPIPEN JR [Concomitant]
     Active Substance: EPINEPHRINE
     Route: 065

REACTIONS (1)
  - Nasopharyngitis [Unknown]
